FAERS Safety Report 5715621-3 (Version None)
Quarter: 2008Q2

REPORT INFORMATION
  Report Type: 
  Country: None (occurrence: None)
  Receive Date: 20080424
  Receipt Date: 20080324
  Transmission Date: 20081010
  Serious: No
  Sender: FDA-Public Use
  Company Number: US-BAYER-200818131NA

PATIENT
  Age: 46 Year
  Sex: Female

DRUGS (3)
  1. MIRENA [Suspect]
     Indication: MENORRHAGIA
     Route: 015
     Dates: start: 20080122, end: 20080220
  2. MIRENA [Suspect]
     Route: 015
     Dates: start: 20080224, end: 20080323
  3. VITAMINS [Concomitant]
     Indication: DRUG USE FOR UNKNOWN INDICATION
     Route: 065

REACTIONS (1)
  - INTRA-UTERINE CONTRACEPTIVE DEVICE EXPELLED [None]
